FAERS Safety Report 23346589 (Version 4)
Quarter: 2024Q2

REPORT INFORMATION
  Report Type: Spontaneous
  Country: US (occurrence: US)
  Receive Date: 20231228
  Receipt Date: 20240515
  Transmission Date: 20240715
  Serious: Yes (Other)
  Sender: FDA-Public Use
  Company Number: US-BRISTOL-MYERS SQUIBB COMPANY-2023-187254

PATIENT
  Age: 59 Year
  Sex: Female

DRUGS (2)
  1. REVLIMID [Suspect]
     Active Substance: LENALIDOMIDE
     Indication: Follicular lymphoma
     Route: 048
     Dates: start: 20231210
  2. REVLIMID [Suspect]
     Active Substance: LENALIDOMIDE
     Route: 048

REACTIONS (7)
  - Chronic kidney disease [Unknown]
  - Nausea [Recovered/Resolved]
  - Feeling of body temperature change [Unknown]
  - Fatigue [Recovered/Resolved]
  - Treatment noncompliance [Unknown]
  - Pain [Unknown]
  - Product dose omission in error [Unknown]
